FAERS Safety Report 16155166 (Version 31)
Quarter: 2025Q1

REPORT INFORMATION
  Report Type: Report from Study
  Country: US (occurrence: US)
  Receive Date: 20190403
  Receipt Date: 20250115
  Transmission Date: 20250409
  Serious: Yes (Hospitalization, Other)
  Sender: TAKEDA
  Company Number: US-TAKEDA-2019TUS015567

PATIENT
  Age: 58 Year
  Sex: Female
  Weight: 62 kg

DRUGS (24)
  1. IXAZOMIB [Suspect]
     Active Substance: IXAZOMIB
     Indication: Plasma cell myeloma
  2. IXAZOMIB [Suspect]
     Active Substance: IXAZOMIB
  3. IXAZOMIB [Suspect]
     Active Substance: IXAZOMIB
  4. IXAZOMIB [Suspect]
     Active Substance: IXAZOMIB
  5. IXAZOMIB [Suspect]
     Active Substance: IXAZOMIB
  6. IXAZOMIB [Suspect]
     Active Substance: IXAZOMIB
  7. IXAZOMIB [Suspect]
     Active Substance: IXAZOMIB
  8. IXAZOMIB [Suspect]
     Active Substance: IXAZOMIB
  9. IXAZOMIB [Suspect]
     Active Substance: IXAZOMIB
  10. REVLIMID [Suspect]
     Active Substance: LENALIDOMIDE
     Indication: Plasma cell myeloma
     Dosage: 25 MILLIGRAM, QD
     Dates: start: 201803
  11. REVLIMID [Suspect]
     Active Substance: LENALIDOMIDE
  12. REVLIMID [Suspect]
     Active Substance: LENALIDOMIDE
  13. REVLIMID [Suspect]
     Active Substance: LENALIDOMIDE
  14. REVLIMID [Suspect]
     Active Substance: LENALIDOMIDE
     Dosage: 10 MILLIGRAM, QD
     Dates: start: 20210318
  15. FOLIC ACID [Concomitant]
     Active Substance: FOLIC ACID
  16. HYDREA [Concomitant]
     Active Substance: HYDROXYUREA
  17. HYDROXYUREA [Concomitant]
     Active Substance: HYDROXYUREA
  18. NEXIUM [Concomitant]
     Active Substance: ESOMEPRAZOLE MAGNESIUM
  19. PHENERGAN [Concomitant]
     Active Substance: PROMETHAZINE HYDROCHLORIDE
  20. URECHOLINE [Concomitant]
     Active Substance: BETHANECHOL CHLORIDE
  21. VALIUM [Concomitant]
     Active Substance: DIAZEPAM
  22. LEVOTHYROXINE [Concomitant]
     Active Substance: LEVOTHYROXINE
  23. AMOXICILLIN [Concomitant]
     Active Substance: AMOXICILLIN
  24. ESTROGENS [Concomitant]
     Active Substance: ESTROGENS

REACTIONS (29)
  - Chills [Recovered/Resolved]
  - Depressed mood [Recovering/Resolving]
  - Feeling of body temperature change [Recovered/Resolved]
  - Distractibility [Unknown]
  - Poor quality sleep [Unknown]
  - Malaise [Unknown]
  - Decreased activity [Unknown]
  - Taste disorder [Not Recovered/Not Resolved]
  - Anxiety [Recovering/Resolving]
  - Feeling abnormal [Recovered/Resolved]
  - Toxicity to various agents [Unknown]
  - Influenza like illness [Not Recovered/Not Resolved]
  - Tremor [Not Recovered/Not Resolved]
  - Cerebrovascular accident [Unknown]
  - Fatigue [Recovered/Resolved]
  - Diarrhoea [Not Recovered/Not Resolved]
  - Constipation [Not Recovered/Not Resolved]
  - Nausea [Unknown]
  - Product packaging issue [Unknown]
  - Product dose omission issue [Unknown]
  - Peripheral swelling [Unknown]
  - Joint swelling [Unknown]
  - Vitamin B12 decreased [Unknown]
  - Onychomycosis [Unknown]
  - Tooth abscess [Unknown]
  - Gastrointestinal disorder [Unknown]
  - Muscle spasms [Unknown]
  - Oedema peripheral [Unknown]
  - Vomiting [Unknown]

NARRATIVE: CASE EVENT DATE: 20190301
